FAERS Safety Report 24201512 (Version 1)
Quarter: 2024Q3

REPORT INFORMATION
  Report Type: Spontaneous
  Country: US (occurrence: None)
  Receive Date: 20240811
  Receipt Date: 20240811
  Transmission Date: 20241016
  Serious: Yes (Disabling, Other)
  Sender: Public
  Company Number: None

PATIENT
  Age: 43 Year
  Sex: Female
  Weight: 94.5 kg

DRUGS (12)
  1. DUPIXENT [Suspect]
     Active Substance: DUPILUMAB
     Indication: Dermatitis atopic
     Dosage: OTHER QUANTITY : 2 INJECTION(S);?OTHER FREQUENCY : BI-WEEKLY INJECTIO;?
     Route: 058
     Dates: start: 20240401, end: 20240804
  2. DUPIXENT [Suspect]
     Active Substance: DUPILUMAB
     Indication: Dyshidrotic eczema
  3. LEVOTHYROXINE [Concomitant]
     Active Substance: LEVOTHYROXINE\LEVOTHYROXINE SODIUM
  4. levoceterizine [Concomitant]
  5. PREDNISOLONE [Concomitant]
     Active Substance: PREDNISOLONE
  6. ATROPINE [Concomitant]
     Active Substance: ATROPINE
  7. DUPIXENT [Concomitant]
     Active Substance: DUPILUMAB
  8. MOTRIN [Concomitant]
     Active Substance: IBUPROFEN
  9. liquid mutli. vitamin [Concomitant]
  10. prebiotic [Concomitant]
  11. BIOTIN [Concomitant]
     Active Substance: BIOTIN
  12. CHLOROPHYLL [Concomitant]

REACTIONS (7)
  - Vision blurred [None]
  - Erythema [None]
  - Pain [None]
  - Foreign body sensation in eyes [None]
  - Photophobia [None]
  - Iridocyclitis [None]
  - Iritis [None]

NARRATIVE: CASE EVENT DATE: 20240804
